FAERS Safety Report 16029147 (Version 1)
Quarter: 2019Q1

REPORT INFORMATION
  Report Type: Spontaneous
  Country: FR (occurrence: FR)
  Receive Date: 20190304
  Receipt Date: 20190304
  Transmission Date: 20190418
  Serious: Yes (Hospitalization)
  Sender: FDA-Public Use
  Company Number: FR-JNJFOC-20190240728

PATIENT
  Age: 26 Year
  Sex: Female

DRUGS (6)
  1. ESLICARBAZEPINE ACETATE [Concomitant]
     Active Substance: ESLICARBAZEPINE ACETATE
     Indication: EPILEPSY
     Route: 065
     Dates: start: 2017
  2. AKINETON [Concomitant]
     Active Substance: BIPERIDEN HYDROCHLORIDE
     Route: 065
  3. TERCIAN [Concomitant]
     Active Substance: CYAMEMAZINE
     Dosage: 25 TWICE PER DAY
     Route: 065
  4. HALDOL [Suspect]
     Active Substance: HALOPERIDOL
     Indication: HALLUCINATION, AUDITORY
     Route: 048
     Dates: start: 201811
  5. EPITOMAX [Concomitant]
     Active Substance: TOPIRAMATE
     Indication: EPILEPSY
     Route: 065
  6. EVEROLIMUS. [Concomitant]
     Active Substance: EVEROLIMUS
     Route: 065

REACTIONS (5)
  - Skin plaque [Unknown]
  - Skin discolouration [Unknown]
  - Erythema [Unknown]
  - Skin induration [Unknown]
  - Pruritus [Unknown]
